FAERS Safety Report 5104760-6 (Version None)
Quarter: 2006Q3

REPORT INFORMATION
  Report Type: 
  Country: None (occurrence: None)
  Receive Date: 20060914
  Receipt Date: 20051204
  Transmission Date: 20061208
  Serious: Yes (Death, Other)
  Sender: FDA-Public Use
  Company Number: AT-PURDUE-DEU_2005_0001839

PATIENT
  Age: 19 Year
  Sex: Male

DRUGS (1)
  1. SUBSTITOL RETARD 200MG-KAPSELN [Suspect]
     Indication: DRUG ABUSER
     Dosage: UNK, SEE TEXT
     Route: 042

REACTIONS (5)
  - BRAIN OEDEMA [None]
  - DRUG ABUSER [None]
  - DRUG TOXICITY [None]
  - INCORRECT ROUTE OF DRUG ADMINISTRATION [None]
  - OVERDOSE [None]
